FAERS Safety Report 9746915 (Version 3)
Quarter: 2014Q2

REPORT INFORMATION
  Report Type: Spontaneous
  Country: CA (occurrence: CA)
  Receive Date: 20131211
  Receipt Date: 20140624
  Transmission Date: 20141212
  Serious: Yes (Death, Hospitalization)
  Sender: FDA-Public Use
  Company Number: CA-009507513-1312CAN004432

PATIENT
  Age: 84 Year
  Sex: Female

DRUGS (1)
  1. SINGULAIR [Suspect]
     Indication: ASTHMA
     Dosage: 10 MG DAILY
     Route: 048

REACTIONS (4)
  - Dyspnoea [Unknown]
  - Heart rate increased [Unknown]
  - Lung disorder [Unknown]
  - Pneumonia [Fatal]
